FAERS Safety Report 7926947-7 (Version None)
Quarter: 2011Q4

REPORT INFORMATION
  Report Type: 
  Country: None (occurrence: None)
  Receive Date: 20111118
  Receipt Date: 20111110
  Transmission Date: 20120403
  Serious: Yes (Hospitalization)
  Sender: FDA-Public Use
  Company Number: DE-BAYER-2011-084986

PATIENT
  Age: 60 Year
  Sex: Male

DRUGS (26)
  1. DURAGESIC-100 [Concomitant]
     Indication: PAIN
     Dosage: 100 ?G, QD
     Dates: start: 20110803
  2. DURAGESIC-100 [Concomitant]
     Dosage: 150 ?G, QD
     Dates: start: 20110818, end: 20110823
  3. IMODIUM [LOPERAMIDE,SIMETICONE] [Concomitant]
     Indication: DIARRHOEA
     Dosage: 2 MG, QD/ PRN
     Route: 048
  4. LYRICA [Concomitant]
     Dosage: 250 ?G, QD
     Route: 048
     Dates: start: 20110818, end: 20110823
  5. FENTANYL [Concomitant]
     Indication: PAIN
     Dosage: 200 ?G, QD/ PRN
     Dates: end: 20110823
  6. DRONABINOL [Concomitant]
     Dosage: 4 DROPS QD/ PRN
     Route: 048
  7. PANTOPRAZOLE [Concomitant]
     Indication: PROPHYLAXIS
     Dosage: 40 MG, QD
     Route: 048
     Dates: start: 20100101
  8. METOPROLOL TARTRATE [Concomitant]
     Indication: HYPERTENSION
     Dosage: 23.75 MG, QD
     Route: 048
     Dates: start: 20090101
  9. LYRICA [Concomitant]
     Dosage: 300 MG, QD
     Route: 048
     Dates: start: 20110824
  10. METAMIZOL [Concomitant]
     Indication: PAIN
     Dosage: 120 DROPS QD
     Route: 048
     Dates: start: 20110815, end: 20110817
  11. SORAFENIB (RAF KINASE INHIBITOR) [Suspect]
     Indication: HEPATIC NEOPLASM MALIGNANT
     Dosage: 400 MG, BID
     Route: 048
     Dates: start: 20110811, end: 20110825
  12. ANTINEOPLASTIC AGENTS [Suspect]
     Indication: HEPATIC NEOPLASM MALIGNANT
     Dosage: 600 MG, QD
     Route: 048
     Dates: start: 20110811, end: 20110815
  13. LYRICA [Concomitant]
     Indication: PAIN
     Dosage: 100 MG, QD
     Route: 048
     Dates: start: 20110803, end: 20110814
  14. DURAGESIC-100 [Concomitant]
     Dosage: 175 ?G, QD
     Dates: start: 20110824
  15. FENTANYL [Concomitant]
     Dosage: 400 ?G, QD/ PRN
     Route: 048
     Dates: start: 20110824
  16. TEPILTA [Concomitant]
     Dosage: UNK UNK, PRN
     Route: 048
  17. MOVIPREP [Concomitant]
     Indication: PROPHYLAXIS
     Dosage: 1 DF, QD/ PRN
     Route: 048
     Dates: start: 20110824
  18. METAMIZOL [Concomitant]
     Dosage: 240 DROPS QD
     Route: 048
     Dates: start: 20110818
  19. METOCLOPRAMIDE [Concomitant]
     Indication: NAUSEA
     Dosage: 20 DROPS QD/ PRN
     Route: 048
     Dates: start: 20110818
  20. ANTINEOPLASTIC AGENTS [Suspect]
     Dosage: 600 MG, QD
     Route: 048
     Dates: start: 20110919
  21. SORAFENIB (RAF KINASE INHIBITOR) [Suspect]
     Dosage: 400 MG, BID
     Route: 048
     Dates: start: 20110919
  22. ZEFFIX [Concomitant]
     Indication: HEPATITIS B
     Dosage: 100 MG, QD
     Route: 048
  23. METRONIDAZOLE [Concomitant]
     Indication: INFECTION
     Dosage: 1200 MG, QD
     Route: 048
     Dates: start: 20110815, end: 20110822
  24. CIPRO [Concomitant]
     Indication: INFECTION
     Dosage: 400 MG, QD
     Route: 048
     Dates: start: 20110815, end: 20110822
  25. DEXAMETHASON [Concomitant]
     Indication: PAIN
     Dosage: 6 MG, QD
     Route: 048
     Dates: start: 20110824
  26. ZOMETA [Concomitant]
     Indication: METASTASIS
     Dosage: 4 MG, QD
     Route: 042
     Dates: start: 20110518

REACTIONS (4)
  - THROMBOCYTOSIS [None]
  - PAIN [None]
  - LEUKOCYTOSIS [None]
  - URINARY TRACT INFECTION [None]
